FAERS Safety Report 8225688-9 (Version None)
Quarter: 2012Q1

REPORT INFORMATION
  Report Type: 
  Country: None (occurrence: None)
  Receive Date: 20120321
  Receipt Date: 20120312
  Transmission Date: 20120608
  Serious: Yes (Hospitalization, Other)
  Sender: FDA-Public Use
  Company Number: DE-ELI_LILLY_AND_COMPANY-DE201108001409

PATIENT
  Age: 79 Year
  Sex: Female

DRUGS (6)
  1. FORTEO [Suspect]
     Indication: OSTEOPOROSIS
     Dosage: UNK, QD
     Route: 058
     Dates: start: 20100503, end: 20110601
  2. MARCUMAR [Concomitant]
  3. FORTEO [Suspect]
     Dosage: UNK, QD
     Route: 058
  4. CALCIUM CARBONATE [Concomitant]
     Dosage: 1000 MG, BID
  5. VITAMIN D [Concomitant]
     Dosage: 800 IU, BID
  6. THYROID THERAPY [Concomitant]
     Indication: HYPOTHYROIDISM
     Dosage: UNK
     Dates: start: 20110101

REACTIONS (3)
  - CARDIAC FIBRILLATION [None]
  - HYPERTHYROIDISM [None]
  - ARRHYTHMIA [None]
